FAERS Safety Report 8132315-8 (Version None)
Quarter: 2012Q1

REPORT INFORMATION
  Report Type: 
  Country: None (occurrence: None)
  Receive Date: 20120213
  Receipt Date: 20120201
  Transmission Date: 20120608
  Serious: Yes (Hospitalization)
  Sender: FDA-Public Use
  Company Number: US-PFIZER INC-2012030751

PATIENT
  Age: 28 Year
  Sex: Female
  Weight: 63.9 kg

DRUGS (1)
  1. TORISEL [Suspect]
     Indication: CERVIX CANCER METASTATIC
     Dosage: 25 MG, OVER 30 MIN ON DAYS 1, 8, 15, AND 22 OF A 28-DAY CYCLE
     Route: 042
     Dates: start: 20110822, end: 20111128

REACTIONS (1)
  - FEMALE GENITAL TRACT FISTULA [None]
